FAERS Safety Report 20715306 (Version 1)
Quarter: 2022Q2

REPORT INFORMATION
  Report Type: Spontaneous
  Country: ES (occurrence: ES)
  Receive Date: 20220415
  Receipt Date: 20220415
  Transmission Date: 20220720
  Serious: Yes (Death, Other)
  Sender: FDA-Public Use
  Company Number: ES-009507513-2203ESP006911

PATIENT
  Age: 69 Year
  Sex: Male

DRUGS (1)
  1. LETERMOVIR [Suspect]
     Active Substance: LETERMOVIR
     Indication: Prophylaxis
     Dosage: 480MG/24H
     Route: 048
     Dates: start: 20211203, end: 20211222

REACTIONS (6)
  - Myelosuppression [Fatal]
  - Renal failure [Fatal]
  - Gastrointestinal haemorrhage [Fatal]
  - Acute graft versus host disease [Fatal]
  - Acute myocardial infarction [Fatal]
  - Capillary leak syndrome [Fatal]

NARRATIVE: CASE EVENT DATE: 20211201
